FAERS Safety Report 8139428-5 (Version None)
Quarter: 2012Q1

REPORT INFORMATION
  Report Type: 
  Country: None (occurrence: None)
  Receive Date: 20120215
  Receipt Date: 20120131
  Transmission Date: 20120608
  Serious: Yes (Hospitalization)
  Sender: FDA-Public Use
  Company Number: US-ASTELLAS-2012US001784

PATIENT
  Sex: Female
  Weight: 80 kg

DRUGS (34)
  1. ERLOTINIB HYDROCHLORIDE [Suspect]
     Indication: NON-SMALL CELL LUNG CANCER
     Dosage: 50 MG, UID/QD
     Route: 048
     Dates: start: 20110316, end: 20120116
  2. ISOSORBIDE MONONITRATE [Concomitant]
     Indication: CORONARY ARTERY DISEASE
     Dosage: 30 MG, UNKNOWN/D
     Route: 048
     Dates: start: 20040301
  3. COUMADIN [Concomitant]
     Indication: THROMBOSIS PROPHYLAXIS
     Dosage: 3 MG, UNKNOWN/D
     Route: 048
     Dates: start: 20111003
  4. COUMADIN [Concomitant]
     Dosage: 4 MG, UNKNOWN/D
     Route: 048
     Dates: start: 20111224
  5. CEFTIN [Concomitant]
     Indication: PRODUCT USED FOR UNKNOWN INDICATION
     Dosage: 1000 MG, UNKNOWN/D
     Route: 065
     Dates: start: 20120102, end: 20120108
  6. BEVACIZUMAB [Suspect]
     Indication: PRODUCT USED FOR UNKNOWN INDICATION
     Dosage: UNK
     Route: 065
  7. CARBOPLATIN [Suspect]
     Indication: PRODUCT USED FOR UNKNOWN INDICATION
     Dosage: UNK
     Route: 065
  8. RANEXA [Concomitant]
     Indication: ANGINA PECTORIS
     Dosage: 1000 MG, UID/QD
     Route: 048
     Dates: start: 20111115
  9. REGLAN [Concomitant]
     Indication: GASTROOESOPHAGEAL REFLUX DISEASE
     Dosage: 30 MG, UID/QD
     Route: 048
     Dates: start: 20111229
  10. MEDROL [Concomitant]
     Indication: DYSPNOEA
     Dosage: 4 MG, UNKNOWN/D
     Route: 048
     Dates: start: 20120112, end: 20120116
  11. LEVOFLOXACIN [Concomitant]
     Indication: COUGH
     Dosage: 750 MG, UID/QD
     Route: 048
     Dates: start: 20120113, end: 20120117
  12. GUAIFENESIN [Concomitant]
     Indication: COUGH
     Dosage: 1 DF, Q6 HOURS
     Route: 048
     Dates: start: 20111223, end: 20120105
  13. LORATADINE [Concomitant]
     Indication: COUGH
     Dosage: 10 MG, UID/QD
     Route: 048
     Dates: start: 20120113, end: 20120117
  14. ACETAMINOPHEN [Concomitant]
     Indication: PAIN
     Dosage: 1000 MG, UNKNOWN/D
     Route: 048
     Dates: start: 20070301
  15. CLEOCIN T [Concomitant]
     Indication: RASH
     Dosage: UNK
     Route: 061
     Dates: start: 20110329
  16. ALBUTEROL SULFATE AND IPRATROPIUM BROMIDE [Concomitant]
     Indication: DYSPNOEA
     Dosage: UNK
     Route: 045
     Dates: start: 20110802
  17. DECADRON [Concomitant]
     Indication: PROPHYLAXIS
     Dosage: 20 MG
     Route: 048
     Dates: start: 20120117, end: 20120118
  18. BENZONATATE [Concomitant]
     Indication: COUGH
     Dosage: 20 MG, Q8 HOURS
     Route: 048
     Dates: start: 20120113
  19. DOXYCYCLINE [Concomitant]
     Indication: RASH
     Dosage: 100 MG, UNKNOWN/D
     Route: 048
     Dates: start: 20111002
  20. BACLOFEN [Concomitant]
     Indication: OESOPHAGEAL SPASM
     Dosage: 10 MG, UID/QD
     Route: 065
     Dates: start: 20111002
  21. MOBIC [Concomitant]
     Dosage: 15 MG, UNKNOWN/D
     Route: 048
     Dates: start: 20110114
  22. CARVEDILOL [Concomitant]
     Indication: CORONARY ARTERY DISEASE
     Dosage: 6.25 MG, UID/QD
     Route: 048
     Dates: start: 20080301
  23. IBUPROFEN [Concomitant]
     Indication: PAIN
     Dosage: 200 MG, PRN
     Route: 048
     Dates: start: 20110803
  24. BENADRYL [Concomitant]
     Indication: INSOMNIA
     Dosage: 25 MG, PRN
     Route: 048
     Dates: start: 20111029
  25. DEXTROMETHORPHAN [Concomitant]
     Indication: COUGH
     Dosage: 1 DF, Q8 HOURS
     Route: 048
     Dates: start: 20120113
  26. GABAPENTIN [Concomitant]
     Indication: CONVULSION
     Dosage: 900 MG, UID/QD
     Route: 048
     Dates: start: 20030301
  27. PACLITAXEL [Suspect]
     Indication: PRODUCT USED FOR UNKNOWN INDICATION
     Dosage: UNK
     Route: 065
  28. FERROUS SULFATE TAB [Concomitant]
     Indication: ANAEMIA
     Dosage: 750 MG, UID/QD
     Route: 048
     Dates: start: 20110309
  29. POTASSIUM CHLORIDE [Concomitant]
     Indication: ELECTROLYTE SUBSTITUTION THERAPY
     Dosage: 20 MEQ, UNKNOWN/D
     Route: 048
     Dates: start: 20050301
  30. LASIX [Concomitant]
     Indication: CORONARY ARTERY DISEASE
     Dosage: 40 MG, UID/QD
     Route: 048
     Dates: start: 20040301
  31. MOM [Concomitant]
     Indication: CONSTIPATION
     Dosage: 30 ML, PRN
     Route: 048
     Dates: start: 20110413
  32. ALBUTEROL SULFATE AND IPRATROPIUM BROMIDE [Concomitant]
     Indication: COUGH
  33. PRILOSEC [Concomitant]
     Indication: DYSPEPSIA
     Dosage: 20 MG, UID/QD
     Route: 048
     Dates: start: 20110713
  34. MOBIC [Concomitant]
     Indication: ARTHRITIS
     Dosage: 7.5 MG, UNKNOWN/D
     Route: 048
     Dates: start: 20111001

REACTIONS (5)
  - ATELECTASIS [None]
  - INCORRECT DOSE ADMINISTERED [None]
  - LEUKOPENIA [None]
  - PANCYTOPENIA [None]
  - PLEURAL EFFUSION [None]
